FAERS Safety Report 10004523 (Version 2)
Quarter: 2014Q1

REPORT INFORMATION
  Report Type: Spontaneous
  Country: US (occurrence: US)
  Receive Date: 20140312
  Receipt Date: 20140312
  Transmission Date: 20141002
  Serious: No
  Sender: FDA-Public Use
  Company Number: US-GILEAD-2012-0060955

PATIENT
  Age: 82 Year
  Sex: Female

DRUGS (4)
  1. LETAIRIS [Suspect]
     Indication: PULMONARY HYPERTENSION
     Dosage: 10 MG, UNK
     Route: 048
     Dates: start: 20111125
  2. LETAIRIS [Suspect]
     Indication: CREST SYNDROME
  3. ADCIRCA [Concomitant]
     Dosage: 20 MG, UNK
  4. ADCIRCA [Concomitant]
     Dosage: 40 MG, UNK

REACTIONS (1)
  - Middle ear effusion [Not Recovered/Not Resolved]
